FAERS Safety Report 9362149 (Version 5)
Quarter: 2013Q3

REPORT INFORMATION
  Report Type: Report from Study
  Country: GR (occurrence: GR)
  Receive Date: 20130621
  Receipt Date: 20130822
  Transmission Date: 20140515
  Serious: Yes (Life-Threatening, Hospitalization)
  Sender: FDA-Public Use
  Company Number: GR-009507513-1306GRC010385

PATIENT
  Age: 72 Year
  Sex: Male
  Weight: 78 kg

DRUGS (16)
  1. DEXAMETHASONE [Suspect]
     Indication: PLASMA CELL MYELOMA
     Dosage: 20MG ON DAY 1, 2, 4, 5, 8, 9, 11 AND 12 EVERY 21 DAYS CYCLE
     Route: 048
     Dates: start: 20121203, end: 20130415
  2. BORTEZOMIB [Suspect]
     Indication: PLASMA CELL MYELOMA
     Dosage: 1.3 MG/M2 ON DAYS ONE, FOUR, EIGHT AND 11 EVERY 21 DAYS
     Route: 058
     Dates: start: 20121203, end: 20130415
  3. DUROGESIC [Concomitant]
     Indication: BONE PAIN
     Dosage: UNK
     Dates: start: 20130401
  4. DISTRANEURIN [Concomitant]
     Indication: ANXIETY DISORDER
     Dosage: UNK
  5. LYRICA [Concomitant]
     Indication: ANXIETY DISORDER
     Dosage: UNK
     Dates: start: 20120917
  6. SEROQUEL [Concomitant]
     Indication: ANXIETY DISORDER
     Dosage: UNK
     Dates: start: 20120917
  7. ZYLAPOUR [Concomitant]
     Indication: HYPERURICAEMIA
     Dosage: UNK
     Dates: start: 20110614
  8. CONTROLOC [Concomitant]
     Indication: GASTRITIS PROPHYLAXIS
     Dosage: UNK
     Dates: start: 20110125
  9. QUETIAPINE FUMARATE [Concomitant]
     Indication: ANXIETY DISORDER
     Dosage: UNK
     Dates: start: 20121002
  10. ARIXTRA [Concomitant]
     Indication: THROMBOSIS PROPHYLAXIS
     Dosage: UNK
     Dates: start: 20121126
  11. INSULIN [Concomitant]
     Indication: DIABETES MELLITUS
  12. AMLOPIN (AMLODIPINE BESYLATE) [Concomitant]
     Indication: HYPERTENSION
     Dosage: UNK
     Dates: start: 20120926
  13. BACTRIMEL [Concomitant]
     Indication: INFECTION PROPHYLAXIS
     Dosage: UNK
     Dates: start: 20110122
  14. CLOVELEN (CLOPIDOGREL BESYLATE) [Concomitant]
     Indication: THROMBOSIS PROPHYLAXIS
     Dosage: UNK
     Dates: start: 20121002
  15. CLOMETHIAZOLE [Concomitant]
     Indication: ANXIETY DISORDER
     Dosage: UNK
     Dates: start: 20120917
  16. GLUCOPHAGE [Concomitant]
     Indication: DIABETES MELLITUS
     Dosage: UNK
     Dates: start: 20110123

REACTIONS (3)
  - Soft tissue infection [Unknown]
  - Bone pain [Not Recovered/Not Resolved]
  - Renal injury [Not Recovered/Not Resolved]
